FAERS Safety Report 8033443-8 (Version None)
Quarter: 2012Q1

REPORT INFORMATION
  Report Type: 
  Country: None (occurrence: None)
  Receive Date: 20120110
  Receipt Date: 20120102
  Transmission Date: 20120608
  Serious: Yes (Other)
  Sender: FDA-Public Use
  Company Number: DE-ROCHE-1027109

PATIENT

DRUGS (2)
  1. PEGINTERFERON ALFA-2A [Suspect]
     Indication: HEPATITIS C
     Route: 058
  2. COPEGUS [Suspect]
     Indication: HEPATITIS C
     Route: 048

REACTIONS (6)
  - HEPATIC NEOPLASM MALIGNANT RECURRENT [None]
  - ANAEMIA [None]
  - CYTOMEGALOVIRUS INFECTION [None]
  - GASTRITIS [None]
  - PANCYTOPENIA [None]
  - GASTRIC ULCER [None]
